FAERS Safety Report 9827918 (Version 1)
Quarter: 2013Q4

REPORT INFORMATION
  Report Type: Spontaneous
  Country: US (occurrence: None)
  Receive Date: 20131120
  Receipt Date: 20131120
  Transmission Date: 20140711
  Serious: Yes (Hospitalization, Other)
  Sender: FDA-Public Use
  Company Number: 2012034143

PATIENT
  Age: 39 Year
  Sex: Female
  Weight: 83.6 kg

DRUGS (1)
  1. BERINERT [Suspect]
     Indication: HEREDITARY ANGIOEDEMA

REACTIONS (3)
  - Condition aggravated [None]
  - Hereditary angioedema [None]
  - Swelling face [None]
